FAERS Safety Report 23976392 (Version 1)
Quarter: 2024Q2

REPORT INFORMATION
  Report Type: Spontaneous
  Country: FR (occurrence: None)
  Receive Date: 20240614
  Receipt Date: 20240614
  Transmission Date: 20240715
  Serious: Yes (Other)
  Sender: FDA-Public Use
  Company Number: 2024A132967

PATIENT
  Age: 50 Year
  Sex: Female

DRUGS (5)
  1. TICAGRELOR [Suspect]
     Active Substance: TICAGRELOR
     Indication: Cardiovascular event prophylaxis
     Dosage: 1/D90.0MG UNKNOWN
     Route: 048
     Dates: start: 20230801
  2. LANSOPRAZOLE [Suspect]
     Active Substance: LANSOPRAZOLE
     Indication: Product used for unknown indication
     Dosage: 1/D15.0MG UNKNOWN
     Route: 048
     Dates: start: 20230801
  3. KARDEGIC [Suspect]
     Active Substance: ASPIRIN DL-LYSINE
     Indication: Cardiovascular event prophylaxis
     Dosage: 1/D75.0MG UNKNOWN
     Route: 048
     Dates: start: 20230801
  4. BISOPROLOL FUMARATE\PERINDOPRIL ARGININE [Suspect]
     Active Substance: BISOPROLOL FUMARATE\PERINDOPRIL ARGININE
     Indication: Cardiovascular event prophylaxis
     Dosage: 1/D5.0MG UNKNOWN
     Route: 048
     Dates: start: 20230801
  5. NEO-MERCAZOLE [Suspect]
     Active Substance: CARBIMAZOLE
     Indication: Graves^ disease
     Dosage: 1/D15.0MG UNKNOWN
     Route: 048
     Dates: start: 20231001

REACTIONS (1)
  - Eosinophilia [Not Recovered/Not Resolved]

NARRATIVE: CASE EVENT DATE: 20230807
